FAERS Safety Report 8477722-9 (Version None)
Quarter: 2012Q2

REPORT INFORMATION
  Report Type: 
  Country: None (occurrence: None)
  Receive Date: 20120629
  Receipt Date: 20120619
  Transmission Date: 20120825
  Serious: Yes (Other)
  Sender: FDA-Public Use
  Company Number: US-BAYER-2012-009265

PATIENT
  Age: 49 Year
  Sex: Female
  Weight: 58 kg

DRUGS (10)
  1. CALCIUM +VIT D [Concomitant]
     Dosage: DAILY
  2. ASCORBIC ACID [Concomitant]
     Dosage: UNK
     Dates: start: 20100901, end: 20120604
  3. GLUCOSAMINE W/CHONDROITIN SULFATE [Concomitant]
     Dosage: DAILY UNK
     Dates: start: 20100401, end: 20120604
  4. TYLENOL W/ CODEINE [Concomitant]
  5. TPN [Concomitant]
     Dosage: UNK
     Dates: start: 20030101, end: 20120604
  6. VITAMIN B6 [Concomitant]
     Dosage: UNK
     Dates: start: 20050101, end: 20120604
  7. DROSPIRENONE AND ETHINYL ESTRADIOL [Suspect]
     Indication: MENSTRUATION IRREGULAR
     Dosage: UNK
     Dates: start: 20100701, end: 20100831
  8. HERBALS [Concomitant]
  9. EFFEXOR XR [Concomitant]
     Dosage: 37.5 DAILTY MG, UNK
  10. EQL B-6 [Concomitant]
     Dosage: 100 MG, UNK

REACTIONS (7)
  - GENERAL PHYSICAL HEALTH DETERIORATION [None]
  - EMOTIONAL DISTRESS [None]
  - DEEP VEIN THROMBOSIS [None]
  - ANXIETY [None]
  - OEDEMA PERIPHERAL [None]
  - INJURY [None]
  - PAIN IN EXTREMITY [None]
